FAERS Safety Report 12419356 (Version 2)
Quarter: 2016Q4

REPORT INFORMATION
  Report Type: Report from Study
  Country: US (occurrence: US)
  Receive Date: 20160531
  Receipt Date: 20161019
  Transmission Date: 20170207
  Serious: Yes (Other)
  Sender: FDA-Public Use
  Company Number: PHEH2014US020525

PATIENT
  Age: 31 Year
  Sex: Female

DRUGS (1)
  1. GILENYA [Suspect]
     Active Substance: FINGOLIMOD HYDROCHLORIDE
     Indication: MULTIPLE SCLEROSIS
     Route: 065
     Dates: start: 20110301

REACTIONS (4)
  - Malaise [Not Recovered/Not Resolved]
  - Altered visual depth perception [Unknown]
  - Memory impairment [Unknown]
  - Gastroenteritis salmonella [Unknown]

NARRATIVE: CASE EVENT DATE: 20160522
